FAERS Safety Report 6689931-X (Version None)
Quarter: 2010Q2

REPORT INFORMATION
  Report Type: 
  Country: None (occurrence: None)
  Receive Date: 20100421
  Receipt Date: 20100419
  Transmission Date: 20101027
  Serious: Yes (Hospitalization)
  Sender: FDA-Public Use
  Company Number: DE-SANOFI-AVENTIS-2010SA022341

PATIENT
  Age: 79 Year
  Sex: Male
  Weight: 75 kg

DRUGS (8)
  1. MULTAQ [Suspect]
     Indication: ATRIAL FIBRILLATION
     Route: 048
     Dates: start: 20100319, end: 20100324
  2. NEBILET [Concomitant]
     Indication: HYPERTENSION
     Route: 048
  3. NEBILET [Concomitant]
     Indication: ATRIAL FIBRILLATION
     Route: 048
  4. RAMIPRIL [Concomitant]
     Indication: HYPERTENSION
     Route: 048
  5. TORSEMIDE [Concomitant]
     Indication: HYPERTENSION
     Route: 048
  6. TAMSULOSIN HCL [Concomitant]
     Indication: DRUG USE FOR UNKNOWN INDICATION
     Route: 048
  7. ATMADISC [Concomitant]
     Route: 065
  8. TIOTROPIUM BROMIDE [Concomitant]
     Route: 065

REACTIONS (3)
  - EXTRASYSTOLES [None]
  - VENTRICULAR EXTRASYSTOLES [None]
  - VENTRICULAR TACHYCARDIA [None]
